FAERS Safety Report 7212195-5 (Version None)
Quarter: 2010Q4

REPORT INFORMATION
  Report Type: 
  Country: None (occurrence: None)
  Receive Date: 20101227
  Receipt Date: 20101209
  Transmission Date: 20110411
  Serious: Yes (Other)
  Sender: FDA-Public Use
  Company Number: 1000017810

PATIENT
  Age: 80 Year
  Sex: Female

DRUGS (10)
  1. MEMANTINE HCL [Suspect]
     Indication: DEMENTIA ALZHEIMER'S TYPE
     Dosage: 20 MG (20 MG, 1 IN 1 D), ORAL
     Route: 048
     Dates: start: 20101101, end: 20101209
  2. MEMANTINE HCL [Suspect]
     Indication: DEMENTIA ALZHEIMER'S TYPE
     Dosage: 5 MG (5 MG,1 IN 1 D), ORAL, 10 MG (10 MG, 1 IN 1 D), ORAL, 15 MG (15 MG, 1 IN 1 D), ORAL
     Route: 048
     Dates: start: 20101101, end: 20101101
  3. MEMANTINE HCL [Suspect]
     Indication: DEMENTIA ALZHEIMER'S TYPE
     Dosage: 5 MG (5 MG,1 IN 1 D), ORAL, 10 MG (10 MG, 1 IN 1 D), ORAL, 15 MG (15 MG, 1 IN 1 D), ORAL
     Route: 048
     Dates: start: 20101101, end: 20101101
  4. MEMANTINE HCL [Suspect]
     Indication: DEMENTIA ALZHEIMER'S TYPE
     Dosage: 5 MG (5 MG,1 IN 1 D), ORAL, 10 MG (10 MG, 1 IN 1 D), ORAL, 15 MG (15 MG, 1 IN 1 D), ORAL
     Route: 048
     Dates: start: 20101101, end: 20101101
  5. ESERTIA (ESCITALOPRAM) (ESCITALOPRAM) [Concomitant]
  6. TRIPTIZOL (AMITRIPTYLINE) [Concomitant]
  7. PLACINORAL (LORAZEPAM) (LORAZEPAM) [Concomitant]
  8. IDALPREM (LORAZEPAM) (LORAZEPAM) [Concomitant]
  9. BONDEZA (IBANDRONATE SODIUM) (IBANDRONATE SODIUM) [Concomitant]
  10. METFORMIN HCL [Concomitant]

REACTIONS (3)
  - ABASIA [None]
  - APHASIA [None]
  - BLOOD PRESSURE SYSTOLIC INCREASED [None]
